FAERS Safety Report 6383592-5 (Version None)
Quarter: 2009Q4

REPORT INFORMATION
  Report Type: 
  Country: None (occurrence: None)
  Receive Date: 20091001
  Receipt Date: 20090924
  Transmission Date: 20100525
  Serious: Yes (Hospitalization)
  Sender: FDA-Public Use
  Company Number: NL-ROCHE-658798

PATIENT
  Sex: Female

DRUGS (7)
  1. RIVOTRIL [Suspect]
     Indication: EPILEPSY
     Route: 048
     Dates: start: 20090831
  2. CLARITHROMYCIN [Interacting]
     Indication: DRUG USE FOR UNKNOWN INDICATION
     Route: 048
     Dates: start: 20090908, end: 20090911
  3. LAMOTRIGINE [Interacting]
     Indication: EPILEPSY
     Dosage: START DATE: BEFORE 2005.
     Route: 048
  4. LAMOTRIGINE [Interacting]
     Route: 048
     Dates: start: 20090714
  5. LOSEC [Concomitant]
     Route: 048
     Dates: start: 20090609
  6. BACLOFEN [Concomitant]
     Dates: start: 20090609
  7. COMBIVENT [Concomitant]
     Dates: start: 20090615

REACTIONS (2)
  - DRUG INTERACTION [None]
  - EPILEPSY [None]
